FAERS Safety Report 8050853-3 (Version None)
Quarter: 2012Q1

REPORT INFORMATION
  Report Type: 
  Country: None (occurrence: None)
  Receive Date: 20120117
  Receipt Date: 20120104
  Transmission Date: 20120608
  Serious: Yes (Other)
  Sender: FDA-Public Use
  Company Number: PHEH2012US000586

PATIENT
  Sex: Male

DRUGS (4)
  1. CLOZAPINE [Suspect]
     Dosage: 100 MG, UNK
  2. SEROQUEL [Concomitant]
     Dosage: 400 MG, BID
  3. ARTANE [Concomitant]
     Dosage: 2 MG, BID
  4. THIORIDAZINE HCL [Concomitant]
     Dosage: 100 MG, TID

REACTIONS (1)
  - MENTAL RETARDATION [None]
